FAERS Safety Report 10355512 (Version 2)
Quarter: 2014Q4

REPORT INFORMATION
  Report Type: Report from Study
  Country: DE (occurrence: DE)
  Receive Date: 20140731
  Receipt Date: 20141124
  Transmission Date: 20150528
  Serious: Yes (Other)
  Sender: FDA-Public Use
  Company Number: DE-ABBVIE-14K-062-1264008-00

PATIENT
  Age: 24 Year
  Sex: Female
  Weight: 51 kg

DRUGS (2)
  1. HUMIRA [Suspect]
     Active Substance: ADALIMUMAB
     Indication: CROHN^S DISEASE
     Route: 058
     Dates: start: 20121129, end: 201212
  2. PARACETAMOL [Concomitant]
     Active Substance: ACETAMINOPHEN
     Indication: PRODUCT USED FOR UNKNOWN INDICATION

REACTIONS (5)
  - Intestinal ulcer [Unknown]
  - Gastrointestinal inflammation [Unknown]
  - Abdominal lymphadenopathy [Recovered/Resolved]
  - Abdominal pain [Recovered/Resolved]
  - Intestinal fistula [Unknown]

NARRATIVE: CASE EVENT DATE: 20121217
